FAERS Safety Report 7967533-2 (Version None)
Quarter: 2011Q4

REPORT INFORMATION
  Report Type: 
  Country: None (occurrence: None)
  Receive Date: 20111209
  Receipt Date: 20111201
  Transmission Date: 20120403
  Serious: Yes (Disabling)
  Sender: FDA-Public Use
  Company Number: GB-JNJFOC-20111201142

PATIENT
  Age: 14 Year
  Sex: Male
  Weight: 65 kg

DRUGS (10)
  1. RISPERIDONE [Suspect]
     Indication: AGGRESSION
     Dosage: AT THE AGE OF 13 YEARS
     Route: 048
  2. RISPERIDONE [Suspect]
     Dosage: AT THE AGE OF 12 YEARS
     Route: 048
  3. RISPERIDONE [Suspect]
     Indication: ANXIETY
     Dosage: AT THE AGE OF 11 YEARS
     Route: 048
  4. RISPERIDONE [Suspect]
     Dosage: DOSE WAS REDUCED (DOSE NOT STATED)
     Route: 048
  5. RISPERIDONE [Suspect]
     Dosage: AT THE AGE OF 13 YEARS
     Route: 048
  6. RISPERIDONE [Suspect]
     Dosage: AT THE AGE OF 14 YEARS
     Route: 048
     Dates: end: 20110321
  7. RISPERIDONE [Suspect]
     Dosage: DOSE WAS REDUCED (DOSE NOT STATED)
     Route: 048
  8. RISPERIDONE [Suspect]
     Dosage: AT THE AGE OF 12 YEARS
     Route: 048
  9. RISPERIDONE [Suspect]
     Dosage: AT THE AGE OF 14 YEARS
     Route: 048
     Dates: end: 20110321
  10. RISPERIDONE [Suspect]
     Dosage: AT THE AGE OF 11 YEARS
     Route: 048

REACTIONS (2)
  - WEIGHT DECREASED [None]
  - GROWTH RETARDATION [None]
